FAERS Safety Report 8012199-9 (Version None)
Quarter: 2011Q4

REPORT INFORMATION
  Report Type: 
  Country: None (occurrence: None)
  Receive Date: 20111228
  Receipt Date: 20111219
  Transmission Date: 20120403
  Serious: Yes (Hospitalization)
  Sender: FDA-Public Use
  Company Number: FR-ASTRAZENECA-2011SE77372

PATIENT
  Age: 66 Year
  Sex: Female

DRUGS (8)
  1. CRESTOR [Suspect]
     Indication: DYSLIPIDAEMIA
     Route: 048
     Dates: start: 20110601, end: 20111117
  2. NEORAL [Interacting]
     Indication: RENAL TRANSPLANT
     Route: 065
     Dates: start: 20050601, end: 20050101
  3. LASIX [Concomitant]
  4. COLCHICINE [Interacting]
     Indication: FAMILIAL MEDITERRANEAN FEVER
     Route: 048
     Dates: end: 20111120
  5. VALSARTAN [Concomitant]
  6. NEORAL [Interacting]
     Route: 065
     Dates: start: 20111101, end: 20111129
  7. MYCOPHENOLATE MOFETIL (CELLCEPT) [Concomitant]
     Dates: start: 20050101
  8. SOTALOL HCL [Concomitant]

REACTIONS (6)
  - TACHYPNOEA [None]
  - DRUG INTERACTION [None]
  - DYSARTHRIA [None]
  - BLOOD CREATINE PHOSPHOKINASE INCREASED [None]
  - MYALGIA [None]
  - MUSCULAR WEAKNESS [None]
